FAERS Safety Report 7966928-0 (Version None)
Quarter: 2011Q4

REPORT INFORMATION
  Report Type: 
  Country: None (occurrence: None)
  Receive Date: 20111209
  Receipt Date: 20111201
  Transmission Date: 20120403
  Serious: Yes (Hospitalization)
  Sender: FDA-Public Use
  Company Number: FR-PFIZER INC-2011292875

PATIENT
  Age: 64 Year
  Sex: Female

DRUGS (16)
  1. MYCOPHENOLATE MOFETIL (CELLCEPT) [Suspect]
     Dosage: UNK
     Route: 048
  2. ARANESP [Concomitant]
     Dosage: UNK
     Dates: end: 20111113
  3. MYCOPHENOLATE MOFETIL (CELLCEPT) [Suspect]
     Dosage: UNK
     Route: 048
     Dates: start: 20111031, end: 20111114
  4. AMLODIPINE BESYLATE [Suspect]
     Route: 048
  5. PREDNISOLONE [Suspect]
     Dosage: UNK
     Route: 048
     Dates: start: 20110820
  6. PREVISCAN [Concomitant]
     Dosage: UNK
     Dates: end: 20111112
  7. SODIUM BICARBONATE [Concomitant]
  8. MYCOPHENOLATE MOFETIL (CELLCEPT) [Suspect]
     Dosage: UNK
     Route: 048
     Dates: start: 20110929
  9. OMEPRAZOLE [Suspect]
     Dosage: UNK
     Route: 048
     Dates: start: 20110820
  10. FERROUS SULFATE TAB [Concomitant]
  11. PROPRANOLOL [Suspect]
     Route: 048
  12. MYCOPHENOLATE MOFETIL (CELLCEPT) [Suspect]
     Dosage: UNK
     Route: 048
     Dates: start: 20110820, end: 20111114
  13. MAG 2 [Concomitant]
     Dosage: UNK
     Dates: end: 20110916
  14. TACROLIMUS MONOHYDRATE [Suspect]
     Dosage: UNK
     Dates: start: 20110820
  15. NOCTRAN 10 [Suspect]
     Dosage: UNK
     Route: 048
  16. PHOSPHONEUROS [Concomitant]
     Dosage: UNK
     Dates: end: 20110916

REACTIONS (1)
  - AGRANULOCYTOSIS [None]
